FAERS Safety Report 6267239-4 (Version None)
Quarter: 2009Q3

REPORT INFORMATION
  Report Type: 
  Country: None (occurrence: None)
  Receive Date: 20090714
  Receipt Date: 20090701
  Transmission Date: 20100115
  Serious: Yes (Hospitalization)
  Sender: FDA-Public Use
  Company Number: GB-PFIZER INC-2009234596

PATIENT
  Age: 67 Year

DRUGS (5)
  1. CHAMPIX [Suspect]
     Indication: SMOKING CESSATION THERAPY
     Dosage: 1 MG, 2X/DAY
     Route: 048
     Dates: start: 20090501
  2. FLUCLOXACILLIN [Interacting]
     Indication: CELLULITIS
     Dosage: 500 MG, 4X/DAY
     Route: 048
     Dates: start: 20090610, end: 20090614
  3. ACETAMINOPHEN W/ CODEINE [Concomitant]
     Indication: OSTEOARTHRITIS
     Route: 048
  4. SERETIDE [Concomitant]
     Indication: CHRONIC OBSTRUCTIVE PULMONARY DISEASE
     Route: 055
  5. TIOTROPIUM BROMIDE [Concomitant]
     Indication: CHRONIC OBSTRUCTIVE PULMONARY DISEASE
     Dosage: 18 UG, UNK
     Route: 055

REACTIONS (3)
  - DRUG INTERACTION [None]
  - HYPERSENSITIVITY [None]
  - URTICARIA [None]
